FAERS Safety Report 10431044 (Version 2)
Quarter: 2014Q3

REPORT INFORMATION
  Report Type: Spontaneous
  Country: GB (occurrence: GB)
  Receive Date: 20140904
  Receipt Date: 20140904
  Transmission Date: 20150326
  Serious: Yes (Death)
  Sender: FDA-Public Use
  Company Number: GB-GE HEALTHCARE MEDICAL DIAGNOSTICS-VISP-PR-1408S-0353

PATIENT
  Age: 76 Year
  Sex: Female
  Weight: 70 kg

DRUGS (3)
  1. VISIPAQUE [Suspect]
     Active Substance: IODIXANOL
     Indication: DIAGNOSTIC PROCEDURE
  2. VISIPAQUE [Suspect]
     Active Substance: IODIXANOL
     Indication: BLOOD LACTIC ACID INCREASED
     Route: 042
     Dates: start: 20140728, end: 20140728
  3. VISIPAQUE [Suspect]
     Active Substance: IODIXANOL
     Indication: INTENSIVE CARE

REACTIONS (4)
  - Pneumonia [None]
  - Cardiac arrest [Fatal]
  - Multi-organ failure [Fatal]
  - Renal infarct [None]

NARRATIVE: CASE EVENT DATE: 20140728
